FAERS Safety Report 15432125 (Version 1)
Quarter: 2018Q3

REPORT INFORMATION
  Report Type: Spontaneous
  Country: CH (occurrence: CH)
  Receive Date: 20180926
  Receipt Date: 20180926
  Transmission Date: 20181010
  Serious: Yes (Congenital Anomaly, Other)
  Sender: FDA-Public Use
  Company Number: CH-GILEAD-2018-0364847

PATIENT

DRUGS (1)
  1. VEMLIDY [Suspect]
     Active Substance: TENOFOVIR ALAFENAMIDE FUMARATE
     Indication: HEPATITIS B
     Dosage: 25 MG, UNK
     Route: 050
     Dates: start: 201805

REACTIONS (2)
  - Paternal exposure before pregnancy [Recovered/Resolved]
  - Foetal malformation [Not Recovered/Not Resolved]

NARRATIVE: CASE EVENT DATE: 2018
